FAERS Safety Report 16406608 (Version 1)
Quarter: 2019Q2

REPORT INFORMATION
  Report Type: Spontaneous
  Country: GB (occurrence: GB)
  Receive Date: 20190607
  Receipt Date: 20190607
  Transmission Date: 20190711
  Serious: Yes (Other)
  Sender: FDA-Public Use
  Company Number: GB-MYLANLABS-2019M1052892

PATIENT
  Age: 49 Year
  Sex: Female

DRUGS (15)
  1. HYDROCORTISONE. [Suspect]
     Active Substance: HYDROCORTISONE
     Indication: ASTHMA
     Dosage: 400 MG
     Route: 042
  2. ADRENALIN                          /00003901/ [Concomitant]
     Active Substance: EPINEPHRINE
     Dosage: UNK
  3. VECURONIUM BROMIDE. [Suspect]
     Active Substance: VECURONIUM BROMIDE
     Indication: MUSCLE RELAXANT THERAPY
     Dosage: 6 MILLIGRAM, QH
  4. ETOMIDATE. [Concomitant]
     Active Substance: ETOMIDATE
     Indication: ANAESTHESIA
     Dosage: UNK
  5. FRAGMIN [Concomitant]
     Active Substance: DALTEPARIN SODIUM
     Dosage: UNK
  6. NORMAL SALINE [Concomitant]
     Active Substance: SODIUM CHLORIDE
     Dosage: INFUSION
  7. HYDROCORTISONE. [Suspect]
     Active Substance: HYDROCORTISONE
     Dosage: 200 MG
  8. ATROVENT [Concomitant]
     Active Substance: IPRATROPIUM BROMIDE
     Indication: ASTHMA
     Dosage: 0.5 MG, NEBULISATOR
  9. MORPHINE [Suspect]
     Active Substance: MORPHINE
     Indication: PRODUCT USED FOR UNKNOWN INDICATION
     Dosage: UNK
     Route: 042
  10. SALBUTAMOL [Concomitant]
     Active Substance: ALBUTEROL
     Indication: ASTHMA
     Dosage: 5 MG
     Route: 042
  11. SUCCINYLCHOLINE CHLORIDE. [Suspect]
     Active Substance: SUCCINYLCHOLINE CHLORIDE
     Indication: MUSCLE RELAXANT THERAPY
     Dosage: UNK
  12. RANITIDINE. [Concomitant]
     Active Substance: RANITIDINE
     Dosage: UNK
  13. CEFUROXIME. [Concomitant]
     Active Substance: CEFUROXIME
     Dosage: UNK
  14. MIDAZOLAM [Concomitant]
     Active Substance: MIDAZOLAM HYDROCHLORIDE
     Dosage: UNK
  15. PROPOFOL. [Concomitant]
     Active Substance: PROPOFOL
     Indication: ANAESTHESIA
     Dosage: UNK

REACTIONS (3)
  - Rhabdomyolysis [Recovering/Resolving]
  - Oliguria [Unknown]
  - Renal impairment [Unknown]
